FAERS Safety Report 8309660-6 (Version None)
Quarter: 2012Q2

REPORT INFORMATION
  Report Type: 
  Country: None (occurrence: None)
  Receive Date: 20120425
  Receipt Date: 20120416
  Transmission Date: 20120825
  Serious: Yes (Other)
  Sender: FDA-Public Use
  Company Number: US-JNJFOC-20120407306

PATIENT
  Sex: Male

DRUGS (2)
  1. UNKNOWN MEDICATION [Interacting]
     Indication: STAPHYLOCOCCAL INFECTION
     Route: 065
  2. DURAGESIC-100 [Suspect]
     Indication: PRODUCT USED FOR UNKNOWN INDICATION
     Route: 062

REACTIONS (2)
  - STAPHYLOCOCCAL INFECTION [None]
  - DRUG INTERACTION [None]
